FAERS Safety Report 15679769 (Version 1)
Quarter: 2018Q4

REPORT INFORMATION
  Report Type: Other
  Country: TR (occurrence: TR)
  Receive Date: 20181203
  Receipt Date: 20181203
  Transmission Date: 20190205
  Serious: Yes (Hospitalization, Other)
  Sender: FDA-Public Use
  Company Number: TR-ORCHID HEALTHCARE-2059530

PATIENT
  Age: 46 Year
  Sex: Male

DRUGS (1)
  1. CETIRIZINE HYDROCHLORIDE. [Suspect]
     Active Substance: CETIRIZINE HYDROCHLORIDE
     Indication: DERMATITIS CONTACT
     Route: 065

REACTIONS (7)
  - Blood triglycerides increased [Recovered/Resolved]
  - Alanine aminotransferase increased [Recovered/Resolved]
  - Blood immunoglobulin E increased [Recovered/Resolved]
  - Blood cholesterol increased [Recovered/Resolved]
  - Drug-induced liver injury [Recovered/Resolved]
  - Gamma-glutamyltransferase increased [Recovering/Resolving]
  - Hepatitis B surface antibody positive [Unknown]
